FAERS Safety Report 10428180 (Version 1)
Quarter: 2014Q3

REPORT INFORMATION
  Report Type: Spontaneous
  Country: US (occurrence: None)
  Receive Date: 20140829
  Receipt Date: 20140829
  Transmission Date: 20150326
  Serious: Yes (Other)
  Sender: FDA-Public Use
  Company Number: 2014SUP00041

PATIENT
  Age: 19 Year
  Sex: Male
  Weight: 86.2 kg

DRUGS (2)
  1. CLONAZEPAM. [Concomitant]
     Active Substance: CLONAZEPAM
  2. OXTELLAR XR [Suspect]
     Active Substance: OXCARBAZEPINE
     Indication: CONVULSION
     Route: 048
     Dates: start: 20140704

REACTIONS (1)
  - Convulsion [None]

NARRATIVE: CASE EVENT DATE: 20140804
